FAERS Safety Report 7760245-X (Version None)
Quarter: 2011Q3

REPORT INFORMATION
  Report Type: 
  Country: None (occurrence: None)
  Receive Date: 20110919
  Receipt Date: 20110310
  Transmission Date: 20111222
  Serious: Yes (Hospitalization)
  Sender: FDA-Public Use
  Company Number: US-GLAXOSMITHKLINE-B0705623A

PATIENT
  Sex: Male

DRUGS (1)
  1. AVANDIA [Suspect]
     Indication: DIABETES MELLITUS
     Dosage: 4MG TWICE PER DAY
     Route: 048
     Dates: start: 20060101, end: 20080101

REACTIONS (3)
  - CARDIOVASCULAR DISORDER [None]
  - ACUTE MYOCARDIAL INFARCTION [None]
  - ISCHAEMIC CARDIOMYOPATHY [None]
